FAERS Safety Report 4951047-8 (Version None)
Quarter: 2006Q1

REPORT INFORMATION
  Report Type: 
  Country: None (occurrence: None)
  Receive Date: 20060322
  Receipt Date: 20050311
  Transmission Date: 20060701
  Serious: Yes (Hospitalization)
  Sender: FDA-Public Use
  Company Number: US-MERCK-0503USA02634

PATIENT
  Age: 73 Year
  Sex: Male
  Weight: 91 kg

DRUGS (9)
  1. VIOXX [Suspect]
     Indication: ARTHRALGIA
     Route: 048
     Dates: start: 19990101, end: 20041001
  2. LISINOPRIL [Concomitant]
     Route: 065
  3. FELODIPINE [Concomitant]
     Route: 065
  4. LEVOTHYROXINE SODIUM [Concomitant]
     Route: 065
  5. CHLORTHALIDONE [Concomitant]
     Route: 065
  6. ZETIA [Concomitant]
     Route: 065
  7. SIMVASTATIN [Concomitant]
     Route: 065
  8. ASPIRIN [Concomitant]
     Route: 065
  9. ANTIVERT [Concomitant]
     Route: 065

REACTIONS (33)
  - ABDOMINAL PAIN [None]
  - ARTERIOSCLEROSIS [None]
  - ARTHRALGIA [None]
  - ARTHRITIS BACTERIAL [None]
  - ASTHENIA [None]
  - ATRIOVENTRICULAR BLOCK FIRST DEGREE [None]
  - CAROTID ARTERY STENOSIS [None]
  - CEREBRAL ATROPHY [None]
  - CHONDROCALCINOSIS PYROPHOSPHATE [None]
  - DEEP VEIN THROMBOSIS [None]
  - DILATATION ATRIAL [None]
  - DILATATION VENTRICULAR [None]
  - GASTROINTESTINAL HAEMORRHAGE [None]
  - HAEMORRHOIDS [None]
  - HEART RATE IRREGULAR [None]
  - HEPATIC ENZYME INCREASED [None]
  - JOINT EFFUSION [None]
  - LACUNAR INFARCTION [None]
  - MASTOIDITIS [None]
  - MITRAL VALVE INCOMPETENCE [None]
  - MONARTHRITIS [None]
  - OSTEOARTHRITIS [None]
  - PAIN [None]
  - PNEUMONIA [None]
  - PULMONARY EMBOLISM [None]
  - PULMONARY HYPERTENSION [None]
  - PYREXIA [None]
  - RENAL FAILURE ACUTE [None]
  - SEPTIC ARTHRITIS STAPHYLOCOCCAL [None]
  - TRANSIENT ISCHAEMIC ATTACK [None]
  - TRICUSPID VALVE INCOMPETENCE [None]
  - UPPER RESPIRATORY TRACT INFECTION [None]
  - VASCULAR CALCIFICATION [None]
